FAERS Safety Report 6280642-1 (Version None)
Quarter: 2009Q3

REPORT INFORMATION
  Report Type: 
  Country: None (occurrence: None)
  Receive Date: 20090724
  Receipt Date: 20081024
  Transmission Date: 20100115
  Serious: No
  Sender: FDA-Public Use
  Company Number: A0754103A

PATIENT
  Sex: Male

DRUGS (1)
  1. AVANDIA [Suspect]
     Indication: DRUG USE FOR UNKNOWN INDICATION
     Dosage: 4MG UNKNOWN
     Route: 065
     Dates: start: 20060101

REACTIONS (1)
  - WHITE BLOOD CELL COUNT DECREASED [None]
